FAERS Safety Report 5915124-7 (Version None)
Quarter: 2008Q4

REPORT INFORMATION
  Report Type: 
  Country: None (occurrence: None)
  Receive Date: 20081008
  Receipt Date: 20081003
  Transmission Date: 20090506
  Serious: Yes (Life-Threatening)
  Sender: FDA-Public Use
  Company Number: 6046205

PATIENT
  Age: 84 Year
  Sex: Female

DRUGS (3)
  1. LODOZ 2.5 MG/6.25 MG(2.5 MG, TABLET)(HYOROCHLOROTHIAZIDE, BISOPROI,OL [Suspect]
     Indication: HYPERTENSION
     Dosage: 1 DOSAGE FORMS (1 DOSAGE FORMS, 1 IN 1 A) 1) ORAL
     Route: 048
     Dates: start: 20080701, end: 20080704
  2. TARKA (190 MG)(VERAPAMIL HYDROCHLORIDE, TRANDOLAPRIL) [Suspect]
     Indication: HYPERTENSION
     Dosage: 1 DOSAGE FORMS (1 DOSAGE FORMS, 1 IN 1 D)  ORAL
     Route: 048
     Dates: start: 20080701, end: 20080704
  3. PREVISCAN (FLUINDIONE) [Concomitant]

REACTIONS (2)
  - ATRIAL FIBRILLATION [None]
  - ATRIOVENTRICULAR BLOCK COMPLETE [None]
